FAERS Safety Report 10464461 (Version 4)
Quarter: 2014Q4

REPORT INFORMATION
  Report Type: Spontaneous
  Country: FR (occurrence: FR)
  Receive Date: 20140919
  Receipt Date: 20141219
  Transmission Date: 20150528
  Serious: Yes (Life-Threatening, Hospitalization)
  Sender: FDA-Public Use
  Company Number: FR-PFIZER INC-2014259992

PATIENT
  Age: 48 Year
  Sex: Female
  Weight: 67 kg

DRUGS (8)
  1. NORVIR [Concomitant]
     Active Substance: RITONAVIR
     Dosage: UNK
  2. MORPHINE SULFATE. [Suspect]
     Active Substance: MORPHINE SULFATE
     Indication: PAIN
     Dosage: 300 MG, SINGLE
     Route: 048
     Dates: start: 20140801, end: 20140801
  3. PREZISTA [Concomitant]
     Active Substance: DARUNAVIR ETHANOLATE
     Dosage: UNK
  4. IMOVANE [Concomitant]
     Active Substance: ZOPICLONE
     Dosage: UNK
  5. MORPHINE SULFATE. [Suspect]
     Active Substance: MORPHINE SULFATE
     Indication: NEUROPATHY PERIPHERAL
  6. TRUVADA [Concomitant]
     Active Substance: EMTRICITABINE\TENOFOVIR DISOPROXIL FUMARATE
     Dosage: UNK
  7. EFFEXOR [Concomitant]
     Active Substance: VENLAFAXINE HYDROCHLORIDE
     Dosage: UNK
  8. LAROXYL [Concomitant]
     Active Substance: AMITRIPTYLINE
     Dosage: UNK

REACTIONS (4)
  - Drug abuse [Unknown]
  - Rhabdomyolysis [Unknown]
  - Pneumonia klebsiella [Unknown]
  - Respiratory distress [Recovering/Resolving]

NARRATIVE: CASE EVENT DATE: 20140801
